FAERS Safety Report 16153608 (Version 1)
Quarter: 2019Q2

REPORT INFORMATION
  Report Type: Spontaneous
  Country: FR (occurrence: FR)
  Receive Date: 20190403
  Receipt Date: 20190403
  Transmission Date: 20190711
  Serious: Yes (Hospitalization, Other)
  Sender: FDA-Public Use
  Company Number: FR-ACCORD-116988

PATIENT
  Age: 38 Year
  Sex: Male

DRUGS (2)
  1. VALPROIC ACID. [Interacting]
     Active Substance: VALPROIC ACID
     Indication: SCHIZOPHRENIA
     Dosage: AT 3000 MG/DAY?RECEIVED IN 2018 ALSO
     Dates: start: 2016
  2. CLOZAPINE. [Suspect]
     Active Substance: CLOZAPINE
     Indication: SCHIZOPHRENIA
     Dosage: 550 MG/DAY?LATER RECEIVED IN 2018
     Dates: start: 2016

REACTIONS (3)
  - Drug interaction [Unknown]
  - Agranulocytosis [Recovered/Resolved]
  - Neutropenia [Unknown]

NARRATIVE: CASE EVENT DATE: 2018
